FAERS Safety Report 22270582 (Version 1)
Quarter: 2023Q2

REPORT INFORMATION
  Report Type: Spontaneous
  Country: US (occurrence: None)
  Receive Date: 20230430
  Receipt Date: 20230430
  Transmission Date: 20230721
  Serious: Yes (Life-Threatening, Hospitalization)
  Sender: FDA-Public Use
  Company Number: None

PATIENT
  Age: 78 Year
  Sex: Male
  Weight: 81.9 kg

DRUGS (1)
  1. FARXIGA [Suspect]
     Active Substance: DAPAGLIFLOZIN PROPANEDIOL
     Indication: Ejection fraction decreased
     Dates: start: 20220625, end: 20220703

REACTIONS (8)
  - Urinary retention [None]
  - Weight increased [None]
  - Pyrexia [None]
  - Sepsis [None]
  - Toxic shock syndrome [None]
  - Pyelonephritis [None]
  - Acute kidney injury [None]
  - Hypotension [None]

NARRATIVE: CASE EVENT DATE: 20220707
